FAERS Safety Report 18889107 (Version 1)
Quarter: 2021Q1

REPORT INFORMATION
  Report Type: Spontaneous
  Country: AU (occurrence: AU)
  Receive Date: 20210213
  Receipt Date: 20210213
  Transmission Date: 20210420
  Serious: Yes (Other)
  Sender: FDA-Public Use
  Company Number: AU-009507513-2102AUS004142

PATIENT
  Age: 64 Year
  Sex: Male

DRUGS (1)
  1. KEYTRUDA [Suspect]
     Active Substance: PEMBROLIZUMAB
     Indication: HODGKIN^S DISEASE
     Dosage: STRENGTH: 100 MG / 4 ML
     Route: 042
     Dates: start: 201912, end: 202004

REACTIONS (4)
  - Hodgkin^s disease recurrent [Unknown]
  - Product availability issue [Unknown]
  - Therapeutic product effect variable [Unknown]
  - Myelodysplastic syndrome [Unknown]
